FAERS Safety Report 8571185-0 (Version None)
Quarter: 2012Q3

REPORT INFORMATION
  Report Type: 
  Country: None (occurrence: None)
  Receive Date: 20120806
  Receipt Date: 20120801
  Transmission Date: 20120928
  Serious: No
  Sender: FDA-Public Use
  Company Number: US-PFIZER INC-2012187866

PATIENT
  Age: 66 Year
  Sex: Female
  Weight: 56.689 kg

DRUGS (3)
  1. CALAN SR [Suspect]
     Dosage: 240 MG, 2X/DAY
  2. MECLIZINE HCL [Suspect]
     Indication: VERTIGO
     Dosage: 25 MG, 3X/DAY
     Route: 048
     Dates: start: 20120301, end: 20120401
  3. NEXIUM [Concomitant]
     Dosage: 40 MG, 1X/DAY

REACTIONS (5)
  - VERTIGO [None]
  - DIZZINESS [None]
  - INCORRECT DOSE ADMINISTERED [None]
  - DRUG INTOLERANCE [None]
  - DRUG INEFFECTIVE [None]
